FAERS Safety Report 16766524 (Version 1)
Quarter: 2019Q4

REPORT INFORMATION
  Report Type: Spontaneous
  Country: US (occurrence: US)
  Receive Date: 20190831
  Receipt Date: 20190831
  Transmission Date: 20200122
  Serious: Yes (Other)
  Sender: FDA-Public Use
  Company Number: None

PATIENT
  Age: 44 Year
  Sex: Female
  Weight: 63 kg

DRUGS (3)
  1. AIMOVIG [Suspect]
     Active Substance: ERENUMAB-AOOE
     Indication: MIGRAINE
     Dosage: ?          OTHER FREQUENCY:ONCE A MONTH;?
     Dates: start: 20181201, end: 20190801
  2. TIZANADONE [Concomitant]
  3. LEXAPRO [Concomitant]
     Active Substance: ESCITALOPRAM OXALATE

REACTIONS (8)
  - Saccadic eye movement [None]
  - Tremor [None]
  - Arthritis [None]
  - Amnesia [None]
  - Pyrexia [None]
  - Arthralgia [None]
  - Muscle twitching [None]
  - Injection site swelling [None]

NARRATIVE: CASE EVENT DATE: 20190801
